FAERS Safety Report 11401046 (Version 1)
Quarter: 2015Q3

REPORT INFORMATION
  Report Type: Report from Study
  Country: FR (occurrence: FR)
  Receive Date: 20150820
  Receipt Date: 20150820
  Transmission Date: 20151125
  Serious: Yes (Hospitalization, Other)
  Sender: FDA-Public Use
  Company Number: FR-BRISTOL-MYERS SQUIBB COMPANY-BMS-2015-045773

PATIENT
  Age: 61 Year
  Sex: Male
  Weight: 51 kg

DRUGS (13)
  1. DACLATASVIR DIHYDROCHLORIDE [Suspect]
     Active Substance: DACLATASVIR DIHYDROCHLORIDE
     Indication: CHRONIC HEPATITIS C
     Dosage: 60 MG, QD
     Route: 048
     Dates: start: 20140807, end: 20150122
  2. AVLOCARDYL                         /00030001/ [Concomitant]
     Active Substance: PROPRANOLOL HYDROCHLORIDE
     Indication: PROPHYLAXIS
     Dosage: 1 DF, UNK
     Route: 065
  3. SOFOSBUVIR [Suspect]
     Active Substance: SOFOSBUVIR
     Indication: CHRONIC HEPATITIS C
     Dosage: 400 MG, QD
     Route: 048
     Dates: start: 20140807, end: 20150122
  4. DUPHALAC [Concomitant]
     Active Substance: LACTULOSE
     Indication: PROPHYLAXIS
     Dosage: 2 DF, QD
     Route: 065
     Dates: start: 20141003, end: 20150323
  5. PREVISCAN                          /00789001/ [Concomitant]
     Active Substance: FLUINDIONE
     Indication: PORTAL VEIN THROMBOSIS
     Route: 065
  6. SPIRONOLACTONE. [Concomitant]
     Active Substance: SPIRONOLACTONE
     Indication: PRODUCT USED FOR UNKNOWN INDICATION
     Dosage: 1 DF, UNK
     Route: 065
  7. DUPHALAC [Concomitant]
     Active Substance: LACTULOSE
     Dosage: 6 DF, QD
     Route: 065
     Dates: start: 20141023, end: 20150323
  8. FUROSEMIDE. [Concomitant]
     Active Substance: FUROSEMIDE
     Indication: PRODUCT USED FOR UNKNOWN INDICATION
     Dosage: 400 MG, QD
     Route: 065
     Dates: end: 20141002
  9. CARBOSYLANE                        /00814601/ [Concomitant]
     Indication: ABDOMINAL DISTENSION
     Dosage: 3 DF, QD
     Route: 065
     Dates: start: 20141031, end: 20150225
  10. RIFAXIMIN [Concomitant]
     Active Substance: RIFAXIMIN
     Indication: HEPATIC ENCEPHALOPATHY
     Dosage: 550 MG, BID
     Route: 065
     Dates: start: 20141031, end: 201504
  11. CARVEDILOL. [Concomitant]
     Active Substance: CARVEDILOL
     Indication: PROPHYLAXIS
     Dosage: 6.25 MG, BID
     Route: 065
     Dates: start: 20150212
  12. SPIRONOLACTONE. [Concomitant]
     Active Substance: SPIRONOLACTONE
     Dosage: 50 MG, BID
     Route: 065
     Dates: end: 20140923
  13. TRAMADOL. [Concomitant]
     Active Substance: TRAMADOL
     Indication: PAIN
     Dosage: 50 MG, TID
     Route: 065
     Dates: start: 20141112

REACTIONS (15)
  - Hepatic encephalopathy [Recovered/Resolved]
  - Vomiting [Recovered/Resolved]
  - Chronic kidney disease [Unknown]
  - Gastrointestinal haemorrhage [Unknown]
  - Asthenia [Not Recovered/Not Resolved]
  - Abdominal cavity drainage [Unknown]
  - Psychomotor retardation [Recovered/Resolved]
  - Abdominal distension [Recovered/Resolved]
  - Peritonitis [Unknown]
  - Respiratory distress [Unknown]
  - Balance disorder [Recovered/Resolved]
  - Temperature intolerance [Recovered/Resolved]
  - Hospitalisation [Unknown]
  - Adverse event [Unknown]
  - Coma [Unknown]

NARRATIVE: CASE EVENT DATE: 201409
